FAERS Safety Report 5618275-X (Version None)
Quarter: 2008Q1

REPORT INFORMATION
  Report Type: 
  Country: None (occurrence: None)
  Receive Date: 20080207
  Receipt Date: 20080201
  Transmission Date: 20080703
  Serious: No
  Sender: FDA-Public Use
  Company Number: US-BAXTER-2008BH001014

PATIENT
  Age: 43 Year
  Sex: Female
  Weight: 103 kg

DRUGS (2)
  1. HEPARIN SODIUM [Suspect]
     Indication: PROPHYLAXIS
     Dosage: DOSE UNIT:CUBIC CENTIMETER
     Route: 033
     Dates: end: 20080119
  2. DIANEAL [Concomitant]
     Indication: HAEMODIALYSIS
     Route: 065
     Dates: start: 20070724, end: 20080123

REACTIONS (11)
  - DIARRHOEA [None]
  - DYSPNOEA [None]
  - FLUSHING [None]
  - HEADACHE [None]
  - MALAISE [None]
  - NAUSEA [None]
  - PALLOR [None]
  - PERITONITIS [None]
  - RESTLESSNESS [None]
  - SOMNOLENCE [None]
  - VOMITING [None]
